FAERS Safety Report 9501667 (Version 1)
Quarter: 2013Q3

REPORT INFORMATION
  Report Type: Report from Study
  Country: BR (occurrence: BR)
  Receive Date: 20130905
  Receipt Date: 20130905
  Transmission Date: 20140515
  Serious: Yes (Hospitalization, Disabling, Other)
  Sender: FDA-Public Use
  Company Number: BR-BAYER-2013-106937

PATIENT
  Age: 42 Year
  Sex: Female

DRUGS (5)
  1. BETAFERON [Suspect]
     Indication: MULTIPLE SCLEROSIS
     Dosage: 1 ML, QOD
     Route: 058
     Dates: start: 2009, end: 201306
  2. ALENDRONATE SODIUM [Concomitant]
     Indication: OSTEOPOROSIS
     Dosage: 70 MG, OW
     Route: 048
     Dates: start: 2010
  3. GLUCOSAMINE [Concomitant]
     Indication: OSTEOPOROSIS
     Dosage: 2 DF, QD
     Route: 048
     Dates: start: 2010
  4. LEXAPRO [Concomitant]
     Indication: HEADACHE
     Dosage: 1 DF, QD
     Route: 048
     Dates: start: 201307
  5. CITALOPRAM [Concomitant]
     Indication: HEADACHE
     Dosage: 1 DF, QD
     Route: 048
     Dates: start: 201303

REACTIONS (9)
  - Multiple sclerosis relapse [Recovered/Resolved]
  - Urinary retention [Recovered/Resolved]
  - Abasia [Recovered/Resolved]
  - Blindness [Recovered/Resolved]
  - Multiple sclerosis relapse [Recovered/Resolved]
  - Visual impairment [Recovered/Resolved]
  - Balance disorder [Recovered/Resolved]
  - Weight decreased [Recovering/Resolving]
  - Hepatomegaly [None]
